FAERS Safety Report 7411876-8 (Version None)
Quarter: 2011Q2

REPORT INFORMATION
  Report Type: 
  Country: None (occurrence: None)
  Receive Date: 20110413
  Receipt Date: 20101019
  Transmission Date: 20111010
  Serious: Yes (Hospitalization)
  Sender: FDA-Public Use
  Company Number: US-BAYER-201035675NA

PATIENT
  Age: 16 Year
  Sex: Female
  Weight: 54.422 kg

DRUGS (9)
  1. TRI-SPRINTEC [Concomitant]
  2. YASMIN [Suspect]
     Indication: PRODUCT USED FOR UNKNOWN INDICATION
     Route: 048
     Dates: start: 20080129
  3. MINOCYCLINE [Concomitant]
     Dosage: 100 MG, UNK
     Route: 048
  4. AMOXICILLIN [Concomitant]
     Dosage: 500 MG, UNK
  5. YAZ [Suspect]
     Dosage: UNK, QD
     Dates: start: 20090401, end: 20090601
  6. TRETINOIN [Concomitant]
     Dosage: UNK %, UNK
     Route: 003
  7. IBUPROFEN [Concomitant]
  8. YAZ [Suspect]
     Indication: ACNE
     Dosage: UNK UNK, QD
     Route: 048
     Dates: start: 20080129, end: 20080601
  9. DIFFERIN [Concomitant]
     Dosage: 0.1 UNK, UNK
     Route: 003

REACTIONS (3)
  - CHOLECYSTITIS [None]
  - GALLBLADDER DISORDER [None]
  - PANCREATITIS CHRONIC [None]
